FAERS Safety Report 5396929-0 (Version None)
Quarter: 2007Q3

REPORT INFORMATION
  Report Type: 
  Country: None (occurrence: None)
  Receive Date: 20070725
  Receipt Date: 20070712
  Transmission Date: 20080115
  Serious: Yes (Death)
  Sender: FDA-Public Use
  Company Number: JP-ASTRAZENECA-2007AP02029

PATIENT
  Age: 12102 Day
  Sex: Male

DRUGS (6)
  1. SEROQUEL [Suspect]
     Indication: SCHIZOPHRENIA
     Route: 048
     Dates: start: 20030725
  2. LULLAN [Concomitant]
     Indication: SCHIZOPHRENIA
     Route: 048
     Dates: start: 20030704
  3. SERENACE [Concomitant]
     Indication: SCHIZOPHRENIA
     Route: 048
     Dates: start: 20060501
  4. AMOBAN [Concomitant]
     Indication: SCHIZOPHRENIA
     Route: 048
     Dates: start: 20020818
  5. CYSVON [Concomitant]
     Indication: SCHIZOPHRENIA
     Route: 048
     Dates: start: 20010622
  6. SENNARIDE [Concomitant]
     Route: 048
     Dates: start: 20010209

REACTIONS (2)
  - CARDIO-RESPIRATORY ARREST [None]
  - SUDDEN DEATH [None]
